FAERS Safety Report 8187603-6 (Version None)
Quarter: 2012Q1

REPORT INFORMATION
  Report Type: 
  Country: None (occurrence: None)
  Receive Date: 20120306
  Receipt Date: 20120229
  Transmission Date: 20120608
  Serious: Yes (Hospitalization)
  Sender: FDA-Public Use
  Company Number: PHHO2011RU11418

PATIENT
  Sex: Male
  Weight: 88 kg

DRUGS (17)
  1. WARFARIN SODIUM [Concomitant]
     Indication: ATRIAL FIBRILLATION
     Dosage: 5.875 MG, QD
     Route: 048
     Dates: start: 20110718, end: 20120111
  2. BLINDED NO TREATMENT RECEIVED [Suspect]
     Indication: CARDIAC FAILURE CHRONIC
     Dosage: DOUBLE BLIND
     Route: 048
     Dates: start: 20110701, end: 20120111
  3. BISOPROLOL FUMARATE [Concomitant]
     Indication: CORONARY ARTERY DISEASE
     Dosage: 2.5 MG, UNK
     Route: 048
     Dates: start: 20101120, end: 20110704
  4. BISOPROLOL FUMARATE [Concomitant]
     Indication: ATRIAL FIBRILLATION
     Dosage: 5 MG, UNK
     Route: 048
     Dates: start: 20110718, end: 20120111
  5. TORVACARD [Concomitant]
     Indication: CORONARY ARTERY DISEASE
     Dosage: 20 MG, QD
     Route: 048
     Dates: start: 20101129
  6. VALSARTAN [Suspect]
     Indication: CARDIAC FAILURE CHRONIC
     Dosage: DOUBLE BLIND
     Route: 048
     Dates: start: 20110701, end: 20120111
  7. SPIRONOLACTONE [Concomitant]
     Dosage: 25 MG, QD
     Route: 048
     Dates: start: 20110718
  8. ENALAPRIL MALEATE [Suspect]
     Indication: CARDIAC FAILURE CHRONIC
     Dosage: DOUBLE BLIND
     Route: 048
     Dates: start: 20110701, end: 20120111
  9. ENALAPRIL MALEATE [Suspect]
     Dosage: DOUBLE BLIND
     Route: 048
     Dates: start: 20120125
  10. VALSARTAN [Suspect]
     Dosage: DOUBLE BLIND
     Route: 048
     Dates: start: 20120125
  11. BLINDED NO TREATMENT RECEIVED [Suspect]
     Dosage: DOUBLE BLIND
     Route: 048
     Dates: start: 20120125
  12. WARFARIN SODIUM [Concomitant]
     Dosage: 4.375 MG, UNK
     Route: 048
     Dates: start: 20110216
  13. AMLODIPINE [Concomitant]
     Indication: HYPERTENSION
     Dosage: 2.5 MG, QD
     Route: 048
     Dates: start: 20110718, end: 20120111
  14. DIGOXIN [Suspect]
     Indication: ATRIAL FIBRILLATION
     Dosage: 0.25 MG, UNK
     Route: 048
     Dates: start: 20110101, end: 20110704
  15. SPIRONOLACTONE [Concomitant]
     Indication: CARDIAC FAILURE CHRONIC
     Dosage: 50 MG, UNK
     Route: 048
     Dates: start: 20101125
  16. DIGOXIN [Suspect]
     Indication: CARDIAC FAILURE
  17. AMLODIPINE [Concomitant]
     Indication: CORONARY ARTERY DISEASE
     Dosage: 5 MG, UNK
     Route: 048
     Dates: start: 20110216

REACTIONS (2)
  - SICK SINUS SYNDROME [None]
  - CORONARY ARTERY DISEASE [None]
